FAERS Safety Report 10227480 (Version 1)
Quarter: 2014Q2

REPORT INFORMATION
  Report Type: Spontaneous
  Country: CH (occurrence: CH)
  Receive Date: 20140610
  Receipt Date: 20140610
  Transmission Date: 20141212
  Serious: Yes (Other)
  Sender: FDA-Public Use
  Company Number: PHHY2014CH069362

PATIENT
  Sex: 0

DRUGS (1)
  1. NILOTINIB [Suspect]
     Dosage: UNK

REACTIONS (2)
  - Coronary artery disease [Unknown]
  - Peripheral arterial occlusive disease [Unknown]
